FAERS Safety Report 8389265-1 (Version None)
Quarter: 2012Q2

REPORT INFORMATION
  Report Type: 
  Country: None (occurrence: None)
  Receive Date: 20120528
  Receipt Date: 20120525
  Transmission Date: 20120825
  Serious: Yes (Other)
  Sender: FDA-Public Use
  Company Number: PHHY2012FR044873

PATIENT
  Sex: Female

DRUGS (2)
  1. ILARIS [Suspect]
     Indication: HYPER IGD SYNDROME
  2. ILARIS [Suspect]
     Indication: MEVALONATE KINASE DEFICIENCY

REACTIONS (1)
  - NODAL ARRHYTHMIA [None]
